FAERS Safety Report 24909952 (Version 2)
Quarter: 2025Q1

REPORT INFORMATION
  Report Type: Spontaneous
  Country: US (occurrence: US)
  Receive Date: 20250131
  Receipt Date: 20250212
  Transmission Date: 20250408
  Serious: Yes (Other)
  Sender: ROCHE
  Company Number: US-ROCHE-10000193318

PATIENT
  Age: 63 Year
  Sex: Female

DRUGS (4)
  1. VABYSMO [Suspect]
     Active Substance: FARICIMAB-SVOA
     Indication: Diabetic retinal oedema
     Route: 065
     Dates: start: 202408
  2. VABYSMO [Suspect]
     Active Substance: FARICIMAB-SVOA
     Route: 065
     Dates: start: 202409
  3. VABYSMO [Suspect]
     Active Substance: FARICIMAB-SVOA
     Route: 065
     Dates: start: 202410
  4. VABYSMO [Suspect]
     Active Substance: FARICIMAB-SVOA
     Route: 065
     Dates: start: 202411

REACTIONS (4)
  - Uveitis [Unknown]
  - Keratic precipitates [Unknown]
  - Endophthalmitis [Unknown]
  - Off label use [Unknown]
